FAERS Safety Report 8903142 (Version 1)
Quarter: 2012Q4

REPORT INFORMATION
  Report Type: 
  Country: US (occurrence: US)
  Receive Date: 20121112
  Receipt Date: 20121112
  Transmission Date: 20130627
  Serious: Yes (Hospitalization, Other)
  Sender: FDA-Public Use
  Company Number: US-JNJCP-30000135498

PATIENT
  Sex: Female

DRUGS (8)
  1. NEUTROGENA OIL FREE ACNE STRESS CONTROL 3 IN 1 HYDRATING ACNE TREATMENT [Suspect]
     Indication: ACNE
     Dosage: pea size amount, twice for only one day
     Route: 061
     Dates: start: 20121005, end: 20121006
  2. NO DRUG NAME [Concomitant]
  3. NO DRUG NAME [Concomitant]
  4. NO DRUG NAME [Concomitant]
  5. NO DRUG NAME [Concomitant]
  6. NO DRUG NAME [Concomitant]
  7. NO DRUG NAME [Concomitant]
  8. NO DRUG NAME [Concomitant]

REACTIONS (4)
  - Acne cosmetica [Recovered/Resolved]
  - Application site pain [Recovered/Resolved]
  - Application site swelling [Recovered/Resolved]
  - Application site erythema [Recovered/Resolved]
